FAERS Safety Report 6554741-0 (Version None)
Quarter: 2010Q1

REPORT INFORMATION
  Report Type: 
  Country: None (occurrence: None)
  Receive Date: 20100127
  Receipt Date: 20100118
  Transmission Date: 20100710
  Serious: Yes (Death)
  Sender: FDA-Public Use
  Company Number: JP-ABBOTT-10P-087-0620954-00

PATIENT
  Age: 81 Year
  Sex: Male

DRUGS (4)
  1. LEUPLIN SR FOR INJECTION 11.25 MG [Suspect]
     Indication: PROSTATE CANCER
     Route: 058
     Dates: start: 20070117, end: 20080312
  2. CHLORMADINONE ACETATE TAB [Concomitant]
     Indication: PROSTATE CANCER
     Route: 048
     Dates: start: 20060815, end: 20061219
  3. CHLORMADINONE ACETATE TAB [Concomitant]
     Route: 048
     Dates: end: 20071218
  4. BICALUTAMIDE [Concomitant]
     Indication: PROSTATE CANCER
     Route: 048
     Dates: start: 20071219, end: 20080421

REACTIONS (1)
  - MARASMUS [None]
